FAERS Safety Report 23684804 (Version 1)
Quarter: 2024Q1

REPORT INFORMATION
  Report Type: Spontaneous
  Country: US (occurrence: US)
  Receive Date: 20240328
  Receipt Date: 20240328
  Transmission Date: 20240410
  Serious: No
  Sender: FDA-Public Use
  Company Number: US-Evolus, Inc.-2023EV000334

PATIENT
  Age: 50 Year
  Sex: Female

DRUGS (3)
  1. JEUVEAU [Suspect]
     Active Substance: PRABOTULINUMTOXINA-XVFS
     Indication: Skin wrinkling
     Dosage: FRONTALIS 15 U, (6 INJECTION POINTS, 2.5 U EACH)?GLABELLAR 15 U, (3 POINT INJECTION, 5 U EACH)?CROW^
     Dates: start: 20230921, end: 20230921
  2. JEUVEAU [Suspect]
     Active Substance: PRABOTULINUMTOXINA-XVFS
     Indication: Skin wrinkling
  3. JEUVEAU [Suspect]
     Active Substance: PRABOTULINUMTOXINA-XVFS
     Indication: Product used for unknown indication

REACTIONS (4)
  - Eyelid ptosis [Recovered/Resolved]
  - Sensory disturbance [Recovered/Resolved]
  - Mephisto sign [Unknown]
  - Off label use [Unknown]

NARRATIVE: CASE EVENT DATE: 20230921
